FAERS Safety Report 10347166 (Version 3)
Quarter: 2014Q3

REPORT INFORMATION
  Report Type: Report from Study
  Country: RU (occurrence: RU)
  Receive Date: 20140729
  Receipt Date: 20140915
  Transmission Date: 20150326
  Serious: Yes (Life-Threatening, Hospitalization)
  Sender: FDA-Public Use
  Company Number: RU-NOVOPROD-417603

PATIENT
  Age: 77 Year
  Sex: Female
  Weight: 80.5 kg

DRUGS (1)
  1. LIRAGLUTIDE FLEXPEN [Suspect]
     Active Substance: LIRAGLUTIDE
     Indication: TYPE 2 DIABETES MELLITUS
     Dosage: 1.8,MG,QD
     Route: 058
     Dates: start: 20110705

REACTIONS (2)
  - Sinus arrest [Recovered/Resolved]
  - Diabetic nephropathy [Recovered/Resolved with Sequelae]

NARRATIVE: CASE EVENT DATE: 20140706
